FAERS Safety Report 11201435 (Version 1)
Quarter: 2015Q2

REPORT INFORMATION
  Report Type: Report from Study
  Country: DE (occurrence: None)
  Receive Date: 20150617
  Receipt Date: 20150617
  Transmission Date: 20150821
  Serious: Yes (Hospitalization)
  Sender: FDA-Public Use
  Company Number: DE-002054

PATIENT
  Age: 76 Year
  Sex: Male
  Weight: 71 kg

DRUGS (1)
  1. REVESTIVE [Suspect]
     Active Substance: TEDUGLUTIDE
     Indication: SHORT-BOWEL SYNDROME
     Dosage: (0.35 MG QD  SUBCUTANEOUS)
     Route: 058

REACTIONS (2)
  - Pyrexia [None]
  - Vomiting [None]

NARRATIVE: CASE EVENT DATE: 20150602
